FAERS Safety Report 8420290-8 (Version None)
Quarter: 2012Q2

REPORT INFORMATION
  Report Type: 
  Country: None (occurrence: None)
  Receive Date: 20120607
  Receipt Date: 20120509
  Transmission Date: 20120825
  Serious: Yes (Other)
  Sender: FDA-Public Use
  Company Number: CHPA2012US011763

PATIENT
  Sex: Female

DRUGS (1)
  1. PREVACID 24 HR [Suspect]
     Dosage: TRIPLING THE STRENGTH, UNK
     Route: 048

REACTIONS (2)
  - OVERDOSE [None]
  - DRUG DEPENDENCE [None]
